FAERS Safety Report 10184241 (Version 1)
Quarter: 2014Q2

REPORT INFORMATION
  Report Type: Spontaneous
  Country: US (occurrence: US)
  Receive Date: 20140520
  Receipt Date: 20140520
  Transmission Date: 20141212
  Serious: No
  Sender: FDA-Public Use
  Company Number: US-ASTRAZENECA-2013SE78231

PATIENT
  Age: 65 Year
  Sex: Female
  Weight: 72.1 kg

DRUGS (3)
  1. RHINOCORT AQUA [Suspect]
     Indication: MULTIPLE ALLERGIES
     Route: 045
     Dates: start: 2005
  2. GENERIC LIPITOR (ATORVASTATIN) [Concomitant]
     Indication: BLOOD CHOLESTEROL INCREASED
  3. GENERIC SINGULAIR [Concomitant]
     Indication: ASTHMA
     Dates: start: 2005

REACTIONS (6)
  - Arthritis [Not Recovered/Not Resolved]
  - Body height decreased [Unknown]
  - Cough [Not Recovered/Not Resolved]
  - Nodule [Not Recovered/Not Resolved]
  - Sensory disturbance [Not Recovered/Not Resolved]
  - Off label use [Unknown]
